FAERS Safety Report 10718420 (Version 1)
Quarter: 2015Q1

REPORT INFORMATION
  Report Type: Spontaneous
  Country: FR (occurrence: FR)
  Receive Date: 20150119
  Receipt Date: 20150119
  Transmission Date: 20150721
  Serious: Yes (Other)
  Sender: FDA-Public Use
  Company Number: FR-CIPLA LTD.-2015FR00390

PATIENT

DRUGS (5)
  1. GEMCITABINE [Suspect]
     Active Substance: GEMCITABINE\GEMCITABINE HYDROCHLORIDE
     Indication: URETERIC CANCER METASTATIC
     Dosage: 1000 MG/M2, ON DAYS 1 AND 8, EVERY 21 DAYS
     Route: 042
  2. CISPLATIN. [Suspect]
     Active Substance: CISPLATIN
     Indication: URETERIC CANCER METASTATIC
     Dosage: 70 MG/M2, 60 MIN, EVERY 21 DAYS
     Route: 042
  3. CARBOPLATIN. [Suspect]
     Active Substance: CARBOPLATIN
     Indication: URETERIC CANCER METASTATIC
     Dosage: AUC 5, OVER 30 MIN ON DAY 1 EVERY 21 DAYS
     Route: 042
  4. TRASTUZUMAB [Suspect]
     Active Substance: TRASTUZUMAB
     Indication: URETERIC CANCER METASTATIC
     Dosage: 8 MG/KG, LOADING DOSE, ON DAY 1
     Route: 042
  5. TRASTUZUMAB [Suspect]
     Active Substance: TRASTUZUMAB
     Dosage: 6 MG/KG, EVERY 21 DAYS
     Route: 042

REACTIONS (1)
  - Cardiotoxicity [Unknown]
